FAERS Safety Report 23215146 (Version 1)
Quarter: 2023Q4

REPORT INFORMATION
  Report Type: Report from Study
  Country: MX (occurrence: MX)
  Receive Date: 20231122
  Receipt Date: 20231122
  Transmission Date: 20240110
  Serious: Yes (Death)
  Sender: FDA-Public Use
  Company Number: MX-ABBVIE-5506667

PATIENT
  Sex: Female

DRUGS (1)
  1. VENCLEXTA [Suspect]
     Active Substance: VENETOCLAX
     Indication: Chronic lymphocytic leukaemia
     Dosage: FORM STRENGTH: 100 MG/THERAPY END DATE: 2023
     Route: 048
     Dates: start: 20230914

REACTIONS (3)
  - Septic shock [Fatal]
  - Sarcoma [Fatal]
  - Unevaluable event [Fatal]

NARRATIVE: CASE EVENT DATE: 20230101
